FAERS Safety Report 4277451-1 (Version None)
Quarter: 2004Q1

REPORT INFORMATION
  Report Type: 
  Country: None (occurrence: None)
  Receive Date: 20040122
  Receipt Date: 20020227
  Transmission Date: 20041129
  Serious: Yes (Hospitalization)
  Sender: FDA-Public Use
  Company Number: ES-ROCHE-308034

PATIENT
  Age: 46 Year
  Sex: Male
  Weight: 76.8 kg

DRUGS (8)
  1. DACLIZUMAB [Suspect]
     Route: 042
     Dates: start: 20020111, end: 20020111
  2. DACLIZUMAB [Suspect]
     Dosage: FOR A TOTAL OF 4 DOSES.
     Route: 042
     Dates: start: 20020124, end: 20020307
  3. MYCOPHENOLATE MOFETIL [Suspect]
     Route: 048
     Dates: start: 20020114
  4. CYCLOSPORINE [Concomitant]
     Dates: start: 20020215
  5. PREDNISONE [Concomitant]
     Dates: start: 20020215
  6. COTRIM [Concomitant]
     Dates: start: 20020118
  7. RANITIDINE [Concomitant]
     Dates: start: 20020115, end: 20030227
  8. LOSARTAN [Concomitant]
     Dates: start: 20020222

REACTIONS (2)
  - ABDOMINAL PAIN UPPER [None]
  - CYTOMEGALOVIRUS INFECTION [None]
